FAERS Safety Report 9651848 (Version 1)
Quarter: 2013Q4

REPORT INFORMATION
  Report Type: Spontaneous
  Country: DE (occurrence: DE)
  Receive Date: 20131029
  Receipt Date: 20131029
  Transmission Date: 20140711
  Serious: No
  Sender: FDA-Public Use
  Company Number: DE-UCBSA-101508

PATIENT
  Age: 41 Year
  Sex: Female
  Weight: 230 kg

DRUGS (4)
  1. KEPPRA [Suspect]
     Indication: STATUS EPILEPTICUS
     Route: 042
  2. KEPPRA [Suspect]
     Indication: CONVULSION
     Route: 042
  3. MIDAZOLAM [Concomitant]
     Indication: STATUS EPILEPTICUS
  4. MIDAZOLAM [Concomitant]
     Indication: CONVULSION

REACTIONS (1)
  - No adverse event [Unknown]
